FAERS Safety Report 15210414 (Version 4)
Quarter: 2019Q2

REPORT INFORMATION
  Report Type: Spontaneous
  Country: US (occurrence: US)
  Receive Date: 20180727
  Receipt Date: 20190515
  Transmission Date: 20190711
  Serious: No
  Sender: FDA-Public Use
  Company Number: US-SA-2018SA198916

PATIENT
  Age: 67 Year
  Sex: Female

DRUGS (2)
  1. DUPIXENT [Suspect]
     Active Substance: DUPILUMAB
     Indication: DERMATITIS ATOPIC
     Dosage: 300 MG, QOW
     Route: 058
     Dates: start: 20180607
  2. DUPIXENT [Suspect]
     Active Substance: DUPILUMAB
     Dosage: 300 MG, QOW
     Route: 058
     Dates: start: 2019

REACTIONS (10)
  - Eye irritation [Unknown]
  - Conjunctivitis [Unknown]
  - Eye discharge [Unknown]
  - Cough [Unknown]
  - Blepharitis [Unknown]
  - Asthenopia [Unknown]
  - Sinusitis [Unknown]
  - Eye pruritus [Not Recovered/Not Resolved]
  - Surgery [Unknown]
  - Keratitis [Unknown]
